FAERS Safety Report 6972643-2 (Version None)
Quarter: 2010Q3

REPORT INFORMATION
  Report Type: 
  Country: None (occurrence: None)
  Receive Date: 20100909
  Receipt Date: 20100901
  Transmission Date: 20110219
  Serious: Yes (Death, Other)
  Sender: FDA-Public Use
  Company Number: JP-BAXTER-2010BH021611

PATIENT
  Age: 87 Year
  Sex: Male
  Weight: 43 kg

DRUGS (6)
  1. FEIBA VH IMMUNO [Suspect]
     Indication: HAEMOSTASIS
     Route: 042
     Dates: start: 20100813, end: 20100815
  2. FEIBA VH IMMUNO [Suspect]
     Indication: ACQUIRED HAEMOPHILIA
     Route: 042
     Dates: start: 20100813, end: 20100815
  3. FEIBA VH IMMUNO [Suspect]
     Route: 042
     Dates: start: 20100813, end: 20100815
  4. FEIBA VH IMMUNO [Suspect]
     Route: 042
     Dates: start: 20100813, end: 20100815
  5. FEIBA [Suspect]
     Indication: HAEMOSTASIS
     Route: 042
     Dates: start: 20100813, end: 20100815
  6. FEIBA [Suspect]
     Indication: ACQUIRED HAEMOPHILIA
     Route: 042
     Dates: start: 20100813, end: 20100815

REACTIONS (2)
  - HAEMORRHAGE SUBCUTANEOUS [None]
  - PNEUMONIA [None]
